FAERS Safety Report 18401585 (Version 2)
Quarter: 2021Q1

REPORT INFORMATION
  Report Type: Spontaneous
  Country: DE (occurrence: DE)
  Receive Date: 20201019
  Receipt Date: 20210128
  Transmission Date: 20210419
  Serious: Yes (Hospitalization, Other)
  Sender: FDA-Public Use
  Company Number: NVSC2020DE277978

PATIENT
  Age: 6 Month
  Sex: Male

DRUGS (1)
  1. METFORMIN [Suspect]
     Active Substance: METFORMIN HYDROCHLORIDE
     Indication: DONOHUE SYNDROME
     Dosage: 25 MG/KG, QD
     Route: 065

REACTIONS (5)
  - International normalised ratio decreased [Recovered/Resolved]
  - Haematochezia [Recovered/Resolved]
  - Haematuria [Recovered/Resolved]
  - Hepatic failure [Recovering/Resolving]
  - Skin haemorrhage [Recovered/Resolved]
